FAERS Safety Report 25902772 (Version 1)
Quarter: 2025Q4

REPORT INFORMATION
  Report Type: Spontaneous
  Country: US (occurrence: US)
  Receive Date: 20251009
  Receipt Date: 20251009
  Transmission Date: 20260117
  Serious: No
  Sender: DR REDDYS
  Company Number: US-DRL-USA-USA/2025/10/015037

PATIENT
  Age: 57 Year
  Sex: Female

DRUGS (5)
  1. OLANZAPINE [Suspect]
     Active Substance: OLANZAPINE
     Indication: Insomnia
  2. OLANZAPINE [Suspect]
     Active Substance: OLANZAPINE
     Indication: Decreased appetite
  3. OLANZAPINE [Suspect]
     Active Substance: OLANZAPINE
     Indication: Impulsive behaviour
  4. OLANZAPINE [Suspect]
     Active Substance: OLANZAPINE
     Indication: Depression
  5. FLUOXETINE [Concomitant]
     Active Substance: FLUOXETINE HYDROCHLORIDE
     Indication: Anorexia nervosa

REACTIONS (2)
  - Insomnia [Unknown]
  - Palpitations [Unknown]
